FAERS Safety Report 4270851-5 (Version None)
Quarter: 2004Q1

REPORT INFORMATION
  Report Type: 
  Country: None (occurrence: None)
  Receive Date: 20040113
  Receipt Date: 20031217
  Transmission Date: 20041129
  Serious: Yes (Death, Hospitalization, Other)
  Sender: FDA-Public Use
  Company Number: US_031299300

PATIENT
  Age: 75 Year
  Weight: 98 kg

DRUGS (3)
  1. PLACEBO [Concomitant]
     Indication: ACUTE MYELOID LEUKAEMIA
     Dosage: 550 MG/DAY
     Dates: start: 20031120
  2. CYTARABINE [Suspect]
     Indication: ACUTE MYELOID LEUKAEMIA
     Dosage: 100 MG/M2/OTHER
     Route: 050
     Dates: start: 20031120
  3. DAUNORUBICIN HCL [Suspect]
     Indication: ACUTE MYELOID LEUKAEMIA
     Dosage: 45 MG/M2/OTHER
     Route: 050
     Dates: start: 20031120

REACTIONS (10)
  - BACTERIA STOOL IDENTIFIED [None]
  - BONE MARROW DEPRESSION [None]
  - CANDIDIASIS [None]
  - CLOSTRIDIAL INFECTION [None]
  - FEBRILE NEUTROPENIA [None]
  - INFECTION IN AN IMMUNOCOMPROMISED HOST [None]
  - LUNG INFILTRATION [None]
  - PLEURAL EFFUSION [None]
  - PNEUMONITIS [None]
  - RESPIRATORY ARREST [None]
